FAERS Safety Report 16348683 (Version 2)
Quarter: 2019Q2

REPORT INFORMATION
  Report Type: Spontaneous
  Country: US (occurrence: US)
  Receive Date: 20190523
  Receipt Date: 20190527
  Transmission Date: 20190711
  Serious: No
  Sender: FDA-Public Use
  Company Number: US-SHIRE-US201916163

PATIENT
  Sex: Female

DRUGS (1)
  1. XIIDRA [Suspect]
     Active Substance: LIFITEGRAST
     Indication: LACRIMAL DISORDER
     Route: 047

REACTIONS (6)
  - Instillation site lacrimation [Unknown]
  - Off label use [Unknown]
  - Product packaging issue [Unknown]
  - Dacryostenosis acquired [Unknown]
  - Crying [Unknown]
  - Sinusitis [Unknown]
